FAERS Safety Report 8491773-X (Version None)
Quarter: 2012Q2

REPORT INFORMATION
  Report Type: 
  Country: None (occurrence: None)
  Receive Date: 20120627
  Receipt Date: 20120620
  Transmission Date: 20120825
  Serious: Yes (Other)
  Sender: FDA-Public Use
  Company Number: 12-483

PATIENT
  Age: 87 Year
  Sex: Female

DRUGS (3)
  1. ALEVE [Suspect]
     Indication: HEADACHE
     Dosage: 1DF / PRN / ORAL
     Route: 048
     Dates: start: 20120601
  2. ASPIRIN [Concomitant]
  3. LIPITOR [Concomitant]

REACTIONS (1)
  - CHOKING [None]
